FAERS Safety Report 16846163 (Version 1)
Quarter: 2019Q3

REPORT INFORMATION
  Report Type: Spontaneous
  Country: US (occurrence: US)
  Receive Date: 20190924
  Receipt Date: 20190924
  Transmission Date: 20191005
  Serious: No
  Sender: FDA-Public Use
  Company Number: US-SA-2019SA259611

PATIENT
  Sex: Male

DRUGS (10)
  1. SUPER B COMPLEX [VITAMIN B COMPLEX] [Concomitant]
  2. COMBIGAN [Concomitant]
     Active Substance: BRIMONIDINE TARTRATE\TIMOLOL MALEATE
  3. LUMIGAN [Concomitant]
     Active Substance: BIMATOPROST
  4. LUTEIN [XANTOFYL] [Concomitant]
  5. EZETIMIBE. [Concomitant]
     Active Substance: EZETIMIBE
  6. MULTIVITAMINS [VITAMINS NOS] [Concomitant]
     Active Substance: VITAMINS
  7. TURMERIC [CURCUMA LONGA] [Concomitant]
  8. VITAMIN D3 [Concomitant]
     Active Substance: CHOLECALCIFEROL
  9. RHOPRESSA [Concomitant]
     Active Substance: NETARSUDIL MESYLATE
  10. PRALUENT [Suspect]
     Active Substance: ALIROCUMAB
     Indication: TYPE IIA HYPERLIPIDAEMIA
     Dosage: 1 ML (75 MG), QOW
     Route: 058
     Dates: start: 20160701

REACTIONS (1)
  - Nasopharyngitis [Unknown]
